FAERS Safety Report 12572951 (Version 1)
Quarter: 2016Q3

REPORT INFORMATION
  Report Type: Report from Study
  Country: CA (occurrence: CA)
  Receive Date: 20160720
  Receipt Date: 20160720
  Transmission Date: 20161109
  Serious: Yes (Hospitalization, Other)
  Sender: FDA-Public Use
  Company Number: CA-BRISTOL-MYERS SQUIBB COMPANY-BMS-2016-056251

PATIENT
  Sex: Female

DRUGS (1)
  1. ABATACEPT [Suspect]
     Active Substance: ABATACEPT
     Indication: RHEUMATOID ARTHRITIS
     Dosage: 125 MG, QWK
     Route: 058

REACTIONS (9)
  - Decreased appetite [Unknown]
  - Nausea [Unknown]
  - Abscess rupture [Unknown]
  - Vomiting [Unknown]
  - Cyst [Unknown]
  - Respiratory disorder [Unknown]
  - Peritonitis [Unknown]
  - Surgery [Unknown]
  - Chest discomfort [Unknown]
